FAERS Safety Report 6940927-X (Version None)
Quarter: 2010Q3

REPORT INFORMATION
  Report Type: 
  Country: None (occurrence: None)
  Receive Date: 20100825
  Receipt Date: 20100817
  Transmission Date: 20110219
  Serious: Yes (Hospitalization)
  Sender: FDA-Public Use
  Company Number: A0790496A

PATIENT
  Age: 70 Year
  Sex: Female
  Weight: 90.9 kg

DRUGS (9)
  1. AVANDIA [Suspect]
     Indication: DIABETES MELLITUS
     Dosage: 8MG PER DAY
     Route: 048
     Dates: start: 20000225, end: 20060101
  2. PREVACID [Concomitant]
  3. SULINDAC [Concomitant]
  4. GLUCOPHAGE [Concomitant]
     Dates: end: 20060401
  5. ZETIA [Concomitant]
  6. NEURONTIN [Concomitant]
  7. FOSAMAX [Concomitant]
  8. FOLTX [Concomitant]
  9. AVAPRO [Concomitant]

REACTIONS (4)
  - ARTERIAL INJURY [None]
  - ATRIAL FIBRILLATION [None]
  - CARDIAC FAILURE CONGESTIVE [None]
  - CORONARY ARTERY DISEASE [None]
